FAERS Safety Report 10398864 (Version 3)
Quarter: 2014Q4

REPORT INFORMATION
  Report Type: Report from Study
  Country: CA (occurrence: CA)
  Receive Date: 20140821
  Receipt Date: 20141103
  Transmission Date: 20150528
  Serious: Yes (Other)
  Sender: FDA-Public Use
  Company Number: CA-AMGEN-CANSP2014062824

PATIENT
  Age: 62 Year
  Sex: Male
  Weight: 123.36 kg

DRUGS (29)
  1. HYDROCHLOROTHIAZIDE. [Concomitant]
     Active Substance: HYDROCHLOROTHIAZIDE
     Indication: BLOOD PRESSURE
     Dosage: 25 MG, QD
     Dates: start: 20140331
  2. TIAZAC [Concomitant]
     Active Substance: DILTIAZEM HYDROCHLORIDE
     Dosage: 240 MG, QD
     Dates: start: 20140807
  3. INSULIN [Concomitant]
     Active Substance: INSULIN NOS
     Indication: BLOOD GLUCOSE INCREASED
     Dosage: VARIABLE
     Dates: start: 20140807
  4. NPH                                /00030513/ [Concomitant]
     Indication: DIABETES MELLITUS
     Dosage: AT HS
     Dates: start: 20140513
  5. ENBREL [Suspect]
     Active Substance: ETANERCEPT
     Indication: PSORIATIC ARTHROPATHY
     Dosage: 50 MG, 2 TIMES/WK
     Route: 058
     Dates: start: 20120202
  6. METHOTREXATE [Concomitant]
     Active Substance: METHOTREXATE
     Indication: PSORIATIC ARTHROPATHY
     Dosage: 10 MG, QWK
     Dates: start: 20140331
  7. DOVOBET [Concomitant]
     Active Substance: BETAMETHASONE\CALCIPOTRIENE
     Indication: PSORIASIS
     Dosage: PRN
     Dates: start: 20140331
  8. SILKIS [Concomitant]
     Indication: PSORIASIS
     Dosage: PRN
     Dates: start: 20140331
  9. STELARA [Suspect]
     Active Substance: USTEKINUMAB
     Indication: PRODUCT USED FOR UNKNOWN INDICATION
     Dosage: 90 MG, UNK
     Route: 065
     Dates: start: 20140419
  10. GLICLAZIDE [Concomitant]
     Active Substance: GLICLAZIDE
     Indication: DIABETES MELLITUS
     Dosage: 30 MG, QD
     Dates: start: 20140331
  11. VALSARTAN. [Concomitant]
     Active Substance: VALSARTAN
     Indication: BLOOD PRESSURE
     Dosage: 160 MG, QD
     Dates: start: 20140331
  12. FOLIC ACID. [Concomitant]
     Active Substance: FOLIC ACID
     Indication: PSORIATIC ARTHROPATHY
     Dosage: 5 MG, 5DAYS/WEEK
     Dates: start: 20140331
  13. TIAZAC [Concomitant]
     Active Substance: DILTIAZEM HYDROCHLORIDE
     Indication: BLOOD PRESSURE
     Dosage: 5 MG, QD
     Dates: start: 20140331
  14. TIAZAC [Concomitant]
     Active Substance: DILTIAZEM HYDROCHLORIDE
     Dosage: 120 MG, BID
     Dates: start: 20140513
  15. AMLODIPINE [Concomitant]
     Active Substance: AMLODIPINE BESYLATE
     Dosage: UNK
  16. DICLOFENAC [Concomitant]
     Active Substance: DICLOFENAC
     Indication: PSORIATIC ARTHROPATHY
     Dosage: 6% PLO GEL 6, PRN
     Dates: start: 20140513
  17. VITAMIN D                          /00107901/ [Concomitant]
     Active Substance: ERGOCALCIFEROL
     Dosage: 1000 IU, 1 TAB/DAY
     Dates: start: 20140331
  18. VITAMIN C [Concomitant]
     Active Substance: ASCORBIC ACID
     Dosage: I TAB / DAY
     Dates: start: 20140331
  19. ARTHROTEC 75 [Concomitant]
     Indication: PSORIATIC ARTHROPATHY
     Dosage: 1 TAB BID
     Dates: start: 20140513
  20. ALLOPURINOL. [Concomitant]
     Active Substance: ALLOPURINOL
     Indication: GOUT
     Dosage: 200 MG, QD
     Dates: start: 20140331
  21. PIOGLITAZONE [Concomitant]
     Active Substance: PIOGLITAZONE
     Dosage: UNK
  22. INSULIN [Concomitant]
     Active Substance: INSULIN NOS
     Indication: DIABETES MELLITUS
     Dosage: 15 UNIT, QD
     Dates: start: 20140331
  23. OMEPRAZOLE. [Concomitant]
     Active Substance: OMEPRAZOLE
     Indication: DYSPEPSIA
     Dosage: 20 MG, QD
     Dates: start: 20140513
  24. ATORVASTATIN [Concomitant]
     Active Substance: ATORVASTATIN
     Dosage: 20 MG, QD
     Dates: start: 20140807
  25. METFORMIN [Concomitant]
     Active Substance: METFORMIN HYDROCHLORIDE
     Indication: DIABETES MELLITUS
     Dosage: 100 MG, BID
     Dates: start: 20140331
  26. METFORMIN [Concomitant]
     Active Substance: METFORMIN HYDROCHLORIDE
     Indication: BLOOD GLUCOSE INCREASED
  27. GLICLAZIDE [Concomitant]
     Active Substance: GLICLAZIDE
     Dosage: 60 MG, QD
     Dates: start: 20140513
  28. ATORVASTATIN [Concomitant]
     Active Substance: ATORVASTATIN
     Indication: BLOOD CHOLESTEROL
     Dosage: 200 MG, QD
     Dates: start: 20140331
  29. TYLENOL [Concomitant]
     Active Substance: ACETAMINOPHEN
     Indication: ARTHRITIS
     Dosage: UNK

REACTIONS (14)
  - Joint fluid drainage [Recovered/Resolved]
  - Decreased appetite [Recovered/Resolved]
  - Joint range of motion decreased [Unknown]
  - Malaise [Recovered/Resolved]
  - Joint swelling [Unknown]
  - Weight decreased [Recovered/Resolved]
  - Drug effect incomplete [Unknown]
  - Nasopharyngitis [Not Recovered/Not Resolved]
  - Blood glucose increased [Recovering/Resolving]
  - Arthralgia [Unknown]
  - Arthritis [Recovered/Resolved]
  - Psoriasis [Not Recovered/Not Resolved]
  - Mobility decreased [Unknown]
  - Nausea [Recovered/Resolved]

NARRATIVE: CASE EVENT DATE: 2014
